FAERS Safety Report 11358854 (Version 1)
Quarter: 2015Q3

REPORT INFORMATION
  Report Type: Spontaneous
  Country: US (occurrence: None)
  Receive Date: 20150807
  Receipt Date: 20150807
  Transmission Date: 20151125
  Serious: Yes (Hospitalization, Disabling, Other)
  Sender: FDA-Public Use
  Company Number: None

PATIENT
  Age: 8 Year
  Sex: Male
  Weight: 43.09 kg

DRUGS (1)
  1. DAYTRANA [Suspect]
     Active Substance: METHYLPHENIDATE
     Route: 061

REACTIONS (7)
  - Decreased appetite [None]
  - Psychomotor hyperactivity [None]
  - Dyslexia [None]
  - Insomnia [None]
  - Dysgraphia [None]
  - Hyperacusis [None]
  - Mental disorder [None]

NARRATIVE: CASE EVENT DATE: 20070617
